FAERS Safety Report 4686014-5 (Version None)
Quarter: 2005Q2

REPORT INFORMATION
  Report Type: 
  Country: None (occurrence: None)
  Receive Date: 20050609
  Receipt Date: 20050531
  Transmission Date: 20051028
  Serious: Yes (Hospitalization)
  Sender: FDA-Public Use
  Company Number: FR-NOVOPROD-244589

PATIENT
  Age: 64 Year
  Sex: Male
  Weight: 85 kg

DRUGS (5)
  1. NORDITROPIN [Suspect]
     Indication: GROWTH HORMONE DEFICIENCY
     Dates: start: 20000901, end: 20040216
  2. HYDROCORTISONE [Concomitant]
     Indication: HYPOPITUITARISM
     Dosage: 20 MG, QD
     Route: 048
     Dates: start: 19950501
  3. LEVOTHYROX [Concomitant]
     Indication: HYPOPITUITARISM
     Dosage: 225 UG, QD
     Route: 048
     Dates: start: 20030401
  4. PANTESTON [Concomitant]
     Indication: HYPOPITUITARISM
     Dosage: 120 MG, QD
     Route: 048
     Dates: start: 19950501
  5. COZAAR [Concomitant]
     Indication: ILL-DEFINED DISORDER
     Dosage: UNK, UNK
     Dates: start: 20020101

REACTIONS (2)
  - BLADDER CANCER [None]
  - URETHRAL NEOPLASM [None]
